FAERS Safety Report 16977909 (Version 1)
Quarter: 2019Q4

REPORT INFORMATION
  Report Type: Report from Study
  Country: CA (occurrence: CA)
  Receive Date: 20191031
  Receipt Date: 20191031
  Transmission Date: 20200122
  Serious: Yes (Hospitalization)
  Sender: FDA-Public Use
  Company Number: CA-ORION CORPORATION ORION PHARMA-TREX2019-4887

PATIENT
  Age: 36 Year
  Sex: Female

DRUGS (4)
  1. BETAMETHASONE DIPROPIONATE CALCIPOTRIOL [Concomitant]
     Route: 065
  2. METHOTREXATE (TRADE NAME UNKNOWN) [Suspect]
     Active Substance: METHOTREXATE
     Indication: PRODUCT USED FOR UNKNOWN INDICATION
     Route: 065
  3. BRODALUMAB [Concomitant]
     Active Substance: BRODALUMAB
     Route: 065
  4. COSENTYX [Suspect]
     Active Substance: SECUKINUMAB
     Indication: PSORIASIS
     Route: 058

REACTIONS (6)
  - Acne [Not Recovered/Not Resolved]
  - Erythema [Not Recovered/Not Resolved]
  - Psoriasis [Not Recovered/Not Resolved]
  - Mental disorder [Not Recovered/Not Resolved]
  - Skin swelling [Not Recovered/Not Resolved]
  - Speech disorder [Not Recovered/Not Resolved]
